FAERS Safety Report 9242763 (Version 1)
Quarter: 2013Q2

REPORT INFORMATION
  Report Type: Spontaneous
  Country: DE (occurrence: DE)
  Receive Date: 20130419
  Receipt Date: 20130419
  Transmission Date: 20140414
  Serious: Yes (Other)
  Sender: FDA-Public Use
  Company Number: DE-JNJFOC-20130406805

PATIENT
  Age: 48 Year
  Sex: Male
  Weight: 99 kg

DRUGS (1)
  1. XEPLION [Suspect]
     Indication: PSYCHOTIC DISORDER
     Route: 030

REACTIONS (5)
  - Visual field defect [Recovered/Resolved]
  - Palpitations [Recovered/Resolved]
  - Depressed mood [Recovered/Resolved]
  - Initial insomnia [Recovered/Resolved]
  - Blood pressure decreased [Recovered/Resolved]
